FAERS Safety Report 12934143 (Version 2)
Quarter: 2019Q3

REPORT INFORMATION
  Report Type: Spontaneous
  Country: US (occurrence: US)
  Receive Date: 20161111
  Receipt Date: 20190710
  Transmission Date: 20191004
  Serious: No
  Sender: FDA-Public Use
  Company Number: US-BIOMARINAP-US-2016-111757

PATIENT
  Sex: Female
  Weight: 94 kg

DRUGS (5)
  1. MECLIZINE HCL [Concomitant]
     Active Substance: MECLIZINE HYDROCHLORIDE
     Indication: PRODUCT USED FOR UNKNOWN INDICATION
  2. PANTOPRAZOLE [Concomitant]
     Active Substance: PANTOPRAZOLE
     Indication: PRODUCT USED FOR UNKNOWN INDICATION
  3. KUVAN [Suspect]
     Active Substance: SAPROPTERIN DIHYDROCHLORIDE
     Indication: PHENYLKETONURIA
     Dosage: 1500 MILLIGRAM, QD
     Route: 065
     Dates: start: 2015
  4. KUVAN [Suspect]
     Active Substance: SAPROPTERIN DIHYDROCHLORIDE
     Indication: PHENYLKETONURIA
     Dosage: 20 MG/KG, QD
     Route: 048
     Dates: start: 2014
  5. BUPROPION. [Concomitant]
     Active Substance: BUPROPION
     Indication: PRODUCT USED FOR UNKNOWN INDICATION

REACTIONS (1)
  - Gastric ulcer [Unknown]
